FAERS Safety Report 10527573 (Version 1)
Quarter: 2014Q4

REPORT INFORMATION
  Report Type: Spontaneous
  Country: FR (occurrence: FR)
  Receive Date: 20141020
  Receipt Date: 20141020
  Transmission Date: 20150528
  Serious: Yes (Hospitalization)
  Sender: FDA-Public Use
  Company Number: FR-JNJFOC-20141009502

PATIENT
  Age: 75 Year
  Sex: Female

DRUGS (11)
  1. EUPRESSYL [Concomitant]
     Active Substance: URAPIDIL
     Indication: PRODUCT USED FOR UNKNOWN INDICATION
     Route: 065
  2. KARDEGIC [Concomitant]
     Active Substance: ASPIRIN LYSINE
     Route: 065
  3. CELECTOL [Concomitant]
     Active Substance: CELIPROLOL HYDROCHLORIDE
     Route: 065
  4. OLMETEC [Suspect]
     Active Substance: OLMESARTAN MEDOXOMIL
     Indication: HYPERTENSION
     Route: 048
     Dates: start: 201406, end: 20140916
  5. LOXEN [Concomitant]
     Active Substance: NICARDIPINE HYDROCHLORIDE
     Route: 065
  6. BACLOFEN. [Suspect]
     Active Substance: BACLOFEN
     Indication: ALCOHOL DETOXIFICATION
     Route: 048
     Dates: end: 20140916
  7. EFFEXOR [Suspect]
     Active Substance: VENLAFAXINE HYDROCHLORIDE
     Indication: ALCOHOL DETOXIFICATION
     Route: 048
  8. PARIET [Concomitant]
     Active Substance: RABEPRAZOLE SODIUM
     Route: 065
  9. PLAVIX [Concomitant]
     Active Substance: CLOPIDOGREL BISULFATE
     Route: 065
  10. TOPALGIC [Suspect]
     Active Substance: TRAMADOL
     Indication: PAIN
     Route: 048
     Dates: end: 20140916
  11. LEVOTHYROX [Concomitant]
     Active Substance: LEVOTHYROXINE
     Route: 065

REACTIONS (2)
  - Confusional state [Recovered/Resolved]
  - Renal failure [Recovered/Resolved]

NARRATIVE: CASE EVENT DATE: 20140916
